FAERS Safety Report 4772554-7 (Version None)
Quarter: 2005Q3

REPORT INFORMATION
  Report Type: 
  Country: None (occurrence: None)
  Receive Date: 20050916
  Receipt Date: 20050916
  Transmission Date: 20060218
  Serious: No
  Sender: FDA-Public Use
  Company Number: None

PATIENT
  Age: 45 Year
  Sex: Female
  Weight: 95.7 kg

DRUGS (2)
  1. CLEOCIN PHOSPHATE [Suspect]
     Indication: CELLULITIS
     Dosage: 600MG X1 IV
     Route: 042
     Dates: start: 20050914, end: 20050914
  2. MORPHINE [Concomitant]

REACTIONS (2)
  - BLISTER [None]
  - URTICARIA [None]
